FAERS Safety Report 5586064-0 (Version None)
Quarter: 2007Q4

REPORT INFORMATION
  Report Type: 
  Country: None (occurrence: None)
  Receive Date: 20071205
  Receipt Date: 20061110
  Transmission Date: 20080405
  Serious: Yes (Other)
  Sender: FDA-Public Use
  Company Number: HQWYE314113NOV06

PATIENT
  Age: 48 Year
  Sex: Male

DRUGS (8)
  1. EFFEXOR XR [Suspect]
     Indication: DEPRESSION
     Dosage: 300 MG 1X PER 1 DAY, ORAL
     Route: 048
     Dates: start: 20000101
  2. EFFEXOR XR [Suspect]
     Indication: PANIC DISORDER
     Dosage: 300 MG 1X PER 1 DAY, ORAL
     Route: 048
     Dates: start: 20000101
  3. EFFEXOR XR [Suspect]
     Indication: SOCIAL PHOBIA
     Dosage: 300 MG 1X PER 1 DAY, ORAL
     Route: 048
     Dates: start: 20000101
  4. XANAX [Concomitant]
  5. AVAPRO [Concomitant]
  6. ACTOS [Concomitant]
  7. GLYBURIDE [Concomitant]
  8. ACIPHEX [Concomitant]

REACTIONS (15)
  - ABDOMINAL PAIN [None]
  - AGGRESSION [None]
  - AGITATION [None]
  - ANOREXIA [None]
  - CONDITION AGGRAVATED [None]
  - DEPRESSION [None]
  - DRY MOUTH [None]
  - HEADACHE [None]
  - MEDICATION RESIDUE [None]
  - MIGRAINE WITH AURA [None]
  - NERVOUSNESS [None]
  - PALPITATIONS [None]
  - POOR QUALITY SLEEP [None]
  - SEXUAL DYSFUNCTION [None]
  - SUICIDAL IDEATION [None]
